FAERS Safety Report 6943598-1 (Version None)
Quarter: 2010Q3

REPORT INFORMATION
  Report Type: 
  Country: None (occurrence: None)
  Receive Date: 20100826
  Receipt Date: 20100824
  Transmission Date: 20110219
  Serious: Yes (Death, Hospitalization, Other)
  Sender: FDA-Public Use
  Company Number: CA-AMGEN-QUU431648

PATIENT
  Age: 8 Month
  Sex: Male

DRUGS (14)
  1. ARANESP [Suspect]
     Indication: PRODUCT USED FOR UNKNOWN INDICATION
     Route: 058
  2. CALCITRIOL [Suspect]
     Route: 065
  3. CELLCEPT [Suspect]
     Route: 048
  4. CLOBAZAM [Concomitant]
     Route: 065
  5. DOMPERIDONE [Concomitant]
     Route: 065
  6. EDECRIN [Concomitant]
     Route: 065
  7. ENALAPRIL [Concomitant]
     Route: 065
  8. FUROSEMIDE [Concomitant]
     Route: 065
  9. LEVETIRACETAM [Concomitant]
     Route: 065
  10. METOLAZONE [Concomitant]
     Route: 065
  11. OMEPRAZOLE [Concomitant]
     Route: 065
  12. SODIUM CHLORIDE [Concomitant]
     Route: 065
  13. TACROLIMUS [Concomitant]
     Route: 065
  14. TOPIRAMATE [Concomitant]
     Route: 065

REACTIONS (15)
  - APLASIA PURE RED CELL [None]
  - ASPIRATION [None]
  - CONTINUOUS POSITIVE AIRWAY PRESSURE [None]
  - DEVELOPMENTAL DELAY [None]
  - ENTEROCOCCAL INFECTION [None]
  - NO THERAPEUTIC RESPONSE [None]
  - OXYGEN SUPPLEMENTATION [None]
  - PACKED RED BLOOD CELL TRANSFUSION [None]
  - PYREXIA [None]
  - RESPIRATORY DISTRESS [None]
  - STAPHYLOCOCCAL INFECTION [None]
  - STAPHYLOCOCCUS TEST POSITIVE [None]
  - THROMBOSIS [None]
  - TRANSPLANT REJECTION [None]
  - WHEEZING [None]
